FAERS Safety Report 13573153 (Version 1)
Quarter: 2017Q2

REPORT INFORMATION
  Report Type: Spontaneous
  Country: IT (occurrence: IT)
  Receive Date: 20170523
  Receipt Date: 20170523
  Transmission Date: 20170830
  Serious: Yes (Hospitalization)
  Sender: FDA-Public Use
  Company Number: IT-PFIZER INC-2017204765

PATIENT
  Age: 93 Year
  Sex: Female

DRUGS (4)
  1. NORVASC [Concomitant]
     Active Substance: AMLODIPINE BESYLATE
     Route: 048
  2. ZIRTEC [Concomitant]
     Active Substance: CETIRIZINE HYDROCHLORIDE
     Route: 048
  3. LORAZEPAM. [Suspect]
     Active Substance: LORAZEPAM
     Indication: SUICIDE ATTEMPT
     Dosage: 4 DF, TOTAL
     Route: 048
     Dates: start: 20170310, end: 20170310
  4. LANSOX [Concomitant]
     Active Substance: LANSOPRAZOLE
     Route: 048

REACTIONS (3)
  - Drug use disorder [Unknown]
  - Suicide attempt [Unknown]
  - Somnolence [Unknown]

NARRATIVE: CASE EVENT DATE: 20170310
